FAERS Safety Report 21488400 (Version 2)
Quarter: 2022Q4

REPORT INFORMATION
  Report Type: Report from Study
  Country: CO (occurrence: CO)
  Receive Date: 20221021
  Receipt Date: 20221110
  Transmission Date: 20230113
  Serious: Yes (Hospitalization, Other)
  Sender: FDA-Public Use
  Company Number: CO-ABBVIE-4168449

PATIENT
  Sex: Male

DRUGS (1)
  1. ZEMPLAR [Suspect]
     Active Substance: PARICALCITOL
     Indication: Hyperparathyroidism secondary
     Dosage: FORM STRENGTH: 5 MICROGRAM
     Route: 042
     Dates: start: 20200917, end: 20221008

REACTIONS (7)
  - Vein disorder [Recovering/Resolving]
  - Somnolence [Recovering/Resolving]
  - Fistula [Recovering/Resolving]
  - Fistula [Recovered/Resolved]
  - Haemorrhage [Recovering/Resolving]
  - Venous injury [Unknown]
  - Hypersomnia [Unknown]

NARRATIVE: CASE EVENT DATE: 20220101
